FAERS Safety Report 10446665 (Version 2)
Quarter: 2018Q2

REPORT INFORMATION
  Report Type: Report from Study
  Country: CH (occurrence: CH)
  Receive Date: 20140911
  Receipt Date: 20180514
  Transmission Date: 20180711
  Serious: Yes (Disabling)
  Sender: FDA-Public Use
  Company Number: CH-BAYER-2014-134028

PATIENT
  Sex: Female

DRUGS (2)
  1. BETAFERON [Suspect]
     Active Substance: INTERFERON BETA-1B
     Indication: MULTIPLE SCLEROSIS
     Dosage: 250 ?G, QOD
     Dates: start: 1996, end: 20170701
  2. LIORESAL [Concomitant]
     Active Substance: BACLOFEN

REACTIONS (8)
  - Injection site atrophy [Recovering/Resolving]
  - Drug delivery device implantation [Unknown]
  - Asthenia [Recovered/Resolved]
  - Injection site induration [Recovering/Resolving]
  - Influenza like illness [Recovered/Resolved]
  - Feeling cold [Recovered/Resolved]
  - Physical disability [Not Recovered/Not Resolved]
  - Feeling hot [Recovered/Resolved]

NARRATIVE: CASE EVENT DATE: 1998
